FAERS Safety Report 9474916 (Version 1)
Quarter: 2013Q3

REPORT INFORMATION
  Report Type: Spontaneous
  Country: US (occurrence: None)
  Receive Date: 20130822
  Receipt Date: 20130822
  Transmission Date: 20140515
  Serious: Yes (Life-Threatening, Disabling, Other)
  Sender: FDA-Public Use
  Company Number: None

PATIENT
  Age: 53 Year
  Sex: Male
  Weight: 86.18 kg

DRUGS (1)
  1. LARIAM [Suspect]
     Indication: MALARIA PROPHYLAXIS
     Dosage: 1 PILL WEEKLY

REACTIONS (6)
  - Suicidal ideation [None]
  - Panic attack [None]
  - Vestibular disorder [None]
  - Tinnitus [None]
  - Brain injury [None]
  - Cerebral disorder [None]
